FAERS Safety Report 17906565 (Version 1)
Quarter: 2020Q2

REPORT INFORMATION
  Report Type: Spontaneous
  Country: US (occurrence: US)
  Receive Date: 20200616
  Receipt Date: 20200616
  Transmission Date: 20200714
  Serious: No
  Sender: FDA-Public Use
  Company Number: None

PATIENT
  Age: 66 Year
  Sex: Female
  Weight: 65.25 kg

DRUGS (1)
  1. CIPROFLOXACN [Suspect]
     Active Substance: CIPROFLOXACIN
     Indication: CYSTITIS
     Dosage: ?          QUANTITY:1 TABLET(S);?
     Route: 048
     Dates: start: 20200608, end: 20200615

REACTIONS (4)
  - Influenza like illness [None]
  - Lymph node pain [None]
  - Sleep disorder [None]
  - Lymphadenopathy [None]

NARRATIVE: CASE EVENT DATE: 20200611
